FAERS Safety Report 9719991 (Version 2)
Quarter: 2014Q1

REPORT INFORMATION
  Report Type: Spontaneous
  Country: US (occurrence: US)
  Receive Date: 20131128
  Receipt Date: 20140128
  Transmission Date: 20141002
  Serious: No
  Sender: FDA-Public Use
  Company Number: US-009507513-1311USA009287

PATIENT
  Age: 74 Year
  Sex: Female

DRUGS (3)
  1. ZIOPTAN [Suspect]
     Indication: GLAUCOMA
     Dosage: 1 GTT, HS
     Route: 047
     Dates: start: 201304, end: 201307
  2. ZIOPTAN [Suspect]
     Dosage: UNK
     Route: 047
     Dates: start: 2013
  3. DIAZEPAM [Suspect]
     Dosage: UNK
     Dates: start: 201307, end: 2013

REACTIONS (6)
  - Vitreous floaters [Not Recovered/Not Resolved]
  - Photophobia [Not Recovered/Not Resolved]
  - Vision blurred [Not Recovered/Not Resolved]
  - Vision blurred [Not Recovered/Not Resolved]
  - Lacrimation increased [Not Recovered/Not Resolved]
  - Drug intolerance [Not Recovered/Not Resolved]
